FAERS Safety Report 6391805-9 (Version None)
Quarter: 2009Q4

REPORT INFORMATION
  Report Type: 
  Country: None (occurrence: None)
  Receive Date: 20091007
  Receipt Date: 20090928
  Transmission Date: 20100525
  Serious: Yes (Hospitalization)
  Sender: FDA-Public Use
  Company Number: IT-ASTRAZENECA-2009SE00337

PATIENT
  Age: 18263 Day
  Sex: Female

DRUGS (2)
  1. NEXIUM [Suspect]
     Indication: GASTROOESOPHAGEAL REFLUX DISEASE
     Route: 048
     Dates: start: 20081105, end: 20081117
  2. ISMIGEN [Suspect]
     Indication: RESPIRATORY TRACT INFECTION
     Route: 048
     Dates: start: 20081112, end: 20081117

REACTIONS (4)
  - DRUG HYPERSENSITIVITY [None]
  - HYPOTENSION [None]
  - URTICARIA [None]
  - VOMITING [None]
